FAERS Safety Report 6512247-9 (Version None)
Quarter: 2009Q4

REPORT INFORMATION
  Report Type: 
  Country: None (occurrence: None)
  Receive Date: 20091222
  Receipt Date: 20090731
  Transmission Date: 20100525
  Serious: No
  Sender: FDA-Public Use
  Company Number: US-ASTRAZENECA-2009UW21640

PATIENT
  Age: 81 Year
  Sex: Female
  Weight: 73.5 kg

DRUGS (5)
  1. CRESTOR [Suspect]
     Route: 048
     Dates: start: 20090101, end: 20090701
  2. HYDROCHLOROTHIAZIDE [Concomitant]
     Indication: HYPERTENSION
  3. MULTIVITAMIN [Concomitant]
     Indication: EYE DISORDER
  4. CALTRATE [Concomitant]
  5. ASPIRIN [Concomitant]

REACTIONS (1)
  - ALOPECIA [None]
